FAERS Safety Report 6342240-0 (Version None)
Quarter: 2009Q3

REPORT INFORMATION
  Report Type: 
  Country: None (occurrence: None)
  Receive Date: 20090903
  Receipt Date: 20090903
  Transmission Date: 20100115
  Serious: No
  Sender: FDA-Public Use
  Company Number: None

PATIENT
  Sex: Female
  Weight: 79.1 kg

DRUGS (8)
  1. GEODON [Suspect]
     Indication: SCHIZOPHRENIA
     Dosage: 120 MG Q 1800 PO 047
     Route: 048
     Dates: start: 20090729, end: 20090804
  2. ATIVAN [Concomitant]
  3. METFORMIN HCL [Concomitant]
  4. GLYBURIDE [Concomitant]
  5. AMBIEN [Concomitant]
  6. LEXAPRO [Concomitant]
  7. ASPIRIN [Concomitant]
  8. BENADRYL [Concomitant]

REACTIONS (2)
  - EYE ROLLING [None]
  - OCULOGYRIC CRISIS [None]
